FAERS Safety Report 9581496 (Version 1)
Quarter: 2013Q4

REPORT INFORMATION
  Report Type: Spontaneous
  Country: JP (occurrence: JP)
  Receive Date: 20131002
  Receipt Date: 20131002
  Transmission Date: 20140711
  Serious: Yes (Other)
  Sender: FDA-Public Use
  Company Number: PHHY2013JP109421

PATIENT
  Sex: Male

DRUGS (1)
  1. DIOVAN [Suspect]
     Dosage: UNK UKN, UNK
     Route: 048

REACTIONS (5)
  - Loss of consciousness [Unknown]
  - Visual field defect [Unknown]
  - Hyperhidrosis [Unknown]
  - Cough [Unknown]
  - Dizziness [Unknown]
